FAERS Safety Report 8760383 (Version 2)
Quarter: 2012Q4

REPORT INFORMATION
  Report Type: 
  Country: CM (occurrence: CM)
  Receive Date: 20120830
  Receipt Date: 20120830
  Transmission Date: 20130627
  Serious: Yes (Death, Hospitalization, Disabling, Other)
  Sender: FDA-Public Use
  Company Number: CM-MERCK-1207CMR011634

PATIENT

DRUGS (2)
  1. MECTIZAN [Suspect]
     Indication: ONCHOCERCIASIS
     Dosage: 4 DF, Once
     Route: 048
     Dates: start: 20120713
  2. LASILIX [Suspect]

REACTIONS (12)
  - Headache [Not Recovered/Not Resolved]
  - Asthenia [Not Recovered/Not Resolved]
  - Pruritus [Not Recovered/Not Resolved]
  - Pyrexia [Not Recovered/Not Resolved]
  - Vertigo [Not Recovered/Not Resolved]
  - Ocular hyperaemia [Not Recovered/Not Resolved]
  - Gait disturbance [Not Recovered/Not Resolved]
  - Adverse event [Unknown]
  - Encephalopathy [Not Recovered/Not Resolved]
  - Fasting [Unknown]
  - Coma [Unknown]
  - Death [Fatal]
